FAERS Safety Report 7204664-9 (Version None)
Quarter: 2010Q4

REPORT INFORMATION
  Report Type: 
  Country: None (occurrence: None)
  Receive Date: 20101230
  Receipt Date: 20101214
  Transmission Date: 20110411
  Serious: No
  Sender: FDA-Public Use
  Company Number: US-PFIZER INC-US-WYE-H09188809

PATIENT
  Age: 62 Year
  Sex: Male
  Weight: 83.9 kg

DRUGS (2)
  1. ADVIL ALLERGY SINUS [Suspect]
     Indication: SINUS CONGESTION
     Dosage: 1 DF, 1X/DAY
     Route: 048
     Dates: start: 20090430, end: 20090430
  2. ADVIL ALLERGY SINUS [Suspect]
     Indication: SINUS HEADACHE

REACTIONS (1)
  - DRUG INEFFECTIVE [None]
